FAERS Safety Report 19454442 (Version 4)
Quarter: 2023Q2

REPORT INFORMATION
  Report Type: Report from Study
  Country: JP (occurrence: JP)
  Receive Date: 20210623
  Receipt Date: 20230410
  Transmission Date: 20230722
  Serious: Yes (Other)
  Sender: FDA-Public Use
  Company Number: JP-JNJFOC-20180912183

PATIENT
  Age: 64 Year
  Sex: Male

DRUGS (32)
  1. EDURANT [Suspect]
     Active Substance: RILPIVIRINE HYDROCHLORIDE
     Indication: HIV infection
     Route: 048
     Dates: start: 20121105, end: 20191031
  2. TRUVADA [Suspect]
     Active Substance: EMTRICITABINE\TENOFOVIR DISOPROXIL FUMARATE
     Indication: HIV infection
     Route: 048
     Dates: start: 20080814, end: 20131006
  3. EPZICOM [Suspect]
     Active Substance: ABACAVIR SULFATE\LAMIVUDINE
     Indication: HIV infection
     Route: 048
     Dates: start: 20131007, end: 20191031
  4. NORVIR [Concomitant]
     Active Substance: RITONAVIR
     Indication: HIV infection
     Route: 048
     Dates: start: 20080814, end: 20110612
  5. NORVIR [Concomitant]
     Active Substance: RITONAVIR
     Indication: HIV infection
     Route: 048
     Dates: start: 20110613, end: 20121104
  6. LEXIVA [Concomitant]
     Active Substance: FOSAMPRENAVIR CALCIUM
     Indication: HIV infection
     Route: 048
     Dates: start: 20080814, end: 20121104
  7. BIKTARVY [Concomitant]
     Active Substance: BICTEGRAVIR SODIUM\EMTRICITABINE\TENOFOVIR ALAFENAMIDE FUMARATE
     Indication: HIV infection
     Route: 048
     Dates: start: 20191101
  8. DEXAMETHASONE DIPROPIONATE [Concomitant]
     Active Substance: DEXAMETHASONE DIPROPIONATE
     Indication: Eczema
     Dosage: Q.S.
     Route: 065
     Dates: start: 20130401, end: 20151028
  9. GLYCOSAMINOGLYCANS [Concomitant]
     Active Substance: GLYCOSAMINOGLYCANS
     Indication: Eczema
     Dosage: Q.S.
     Route: 065
     Dates: start: 20130401
  10. LEVOCETIRIZINE DIHYDROCHLORIDE [Concomitant]
     Active Substance: LEVOCETIRIZINE DIHYDROCHLORIDE
     Indication: Eczema
     Route: 048
     Dates: start: 20130401, end: 20130512
  11. LEVOCETIRIZINE DIHYDROCHLORIDE [Concomitant]
     Active Substance: LEVOCETIRIZINE DIHYDROCHLORIDE
     Indication: Eczema
     Route: 048
     Dates: start: 20130513, end: 20130905
  12. LEVOCETIRIZINE DIHYDROCHLORIDE [Concomitant]
     Active Substance: LEVOCETIRIZINE DIHYDROCHLORIDE
     Indication: Eczema
     Route: 048
     Dates: start: 20150401, end: 20160103
  13. LEVOCETIRIZINE DIHYDROCHLORIDE [Concomitant]
     Active Substance: LEVOCETIRIZINE DIHYDROCHLORIDE
     Indication: Urticaria chronic
     Route: 048
     Dates: start: 20160104
  14. BARACLUDE [Concomitant]
     Active Substance: ENTECAVIR
     Indication: Chronic hepatitis B
     Route: 048
     Dates: start: 20131007, end: 20191019
  15. MOMETASONE [Concomitant]
     Active Substance: MOMETASONE
     Indication: Eczema
     Dosage: 1-2 TIMES DAILY`UNKNOWN
     Route: 061
     Dates: start: 20150401, end: 20160103
  16. BETAMETHASONE DIPROPIONATE [Concomitant]
     Active Substance: BETAMETHASONE DIPROPIONATE
     Indication: Eczema
     Dosage: Q.S.
     Route: 061
     Dates: start: 20160104
  17. XYZAL [Concomitant]
     Active Substance: LEVOCETIRIZINE DIHYDROCHLORIDE
     Indication: Urticaria chronic
     Route: 048
     Dates: start: 20151029, end: 20160620
  18. BETAMETHASONE BUTYRATE PROPIONATE [Concomitant]
     Active Substance: BETAMETHASONE BUTYRATE PROPIONATE
     Indication: Urticaria chronic
     Dosage: Q.S.
     Route: 061
     Dates: start: 20151029
  19. RESTAMIN CORTIZON [Concomitant]
     Indication: Urticaria chronic
     Dosage: Q.S.
     Route: 061
     Dates: start: 20160104
  20. CLOBETASOL [Concomitant]
     Active Substance: CLOBETASOL
     Indication: Eczema
     Dosage: UNKNOWN
     Route: 061
     Dates: start: 20170821
  21. OLMESARTAN MEDOXOMIL [Concomitant]
     Active Substance: OLMESARTAN MEDOXOMIL
     Indication: Hypertension
     Route: 048
     Dates: start: 20180205, end: 20180304
  22. OLMESARTAN MEDOXOMIL [Concomitant]
     Active Substance: OLMESARTAN MEDOXOMIL
     Indication: Hypertension
     Route: 048
     Dates: start: 20180305, end: 20180402
  23. GASTER [Concomitant]
     Active Substance: FAMOTIDINE
     Indication: Nausea
     Dosage: UNKNOWN
     Route: 048
     Dates: start: 20181029
  24. FLUTICASONE PROPIONATE\SALMETEROL XINAFOATE [Concomitant]
     Active Substance: FLUTICASONE PROPIONATE\SALMETEROL XINAFOATE
     Indication: Cough variant asthma
     Dosage: DOSE UNKNOWN
     Route: 055
     Dates: start: 201907
  25. DEXTROMETHORPHAN HYDROBROMIDE [Concomitant]
     Active Substance: DEXTROMETHORPHAN HYDROBROMIDE
     Indication: Cough variant asthma
     Dosage: DOSE UNKNOWN
     Route: 048
     Dates: start: 20190829, end: 20190905
  26. ROSUVASTATIN CALCIUM [Concomitant]
     Active Substance: ROSUVASTATIN CALCIUM
     Indication: Dyslipidaemia
     Dosage: DOSE UNKNOWN
     Route: 048
     Dates: start: 20210712
  27. CEFACLOR [Concomitant]
     Active Substance: CEFACLOR
     Indication: Vocal cord thickening
     Dosage: DOSE UNKNOWN
     Route: 048
     Dates: start: 20211202, end: 20211204
  28. TRANSAMIN [Concomitant]
     Active Substance: TRANEXAMIC ACID
     Indication: Vocal cord thickening
     Dosage: DOSE UNKNOWN
     Route: 065
     Dates: start: 20211109, end: 20220204
  29. CARBOCYSTEINE [Concomitant]
     Active Substance: CARBOCYSTEINE
     Indication: Vocal cord thickening
     Dosage: DOSE UNKNOWN
     Route: 048
     Dates: start: 20211109, end: 20220204
  30. LOCOID [Concomitant]
     Active Substance: HYDROCORTISONE BUTYRATE
     Indication: Actinic keratosis
     Dosage: DOSE UNKNOWN
     Route: 061
     Dates: start: 20211108
  31. BESELNA [Concomitant]
     Indication: Actinic keratosis
     Dosage: DOSE UNKNOWN
     Route: 061
     Dates: start: 20220117
  32. HERBALS [Concomitant]
     Active Substance: HERBALS
     Indication: Vocal cord thickening
     Dosage: DOSE UNKNOWN
     Route: 048
     Dates: start: 20211109, end: 20220204

REACTIONS (6)
  - Renal impairment [Recovered/Resolved]
  - Hypertension [Recovering/Resolving]
  - Pancreatic cystadenoma [Recovering/Resolving]
  - Urticaria chronic [Recovering/Resolving]
  - Nausea [Recovering/Resolving]
  - Cough variant asthma [Recovering/Resolving]

NARRATIVE: CASE EVENT DATE: 20130513
